FAERS Safety Report 5802985-5 (Version None)
Quarter: 2008Q2

REPORT INFORMATION
  Report Type: 
  Country: None (occurrence: None)
  Receive Date: 20080626
  Receipt Date: 20080422
  Transmission Date: 20081010
  Serious: No
  Sender: FDA-Public Use
  Company Number: US-CVT-080031

PATIENT
  Age: 72 Year
  Sex: Male

DRUGS (14)
  1. RANEXA [Suspect]
     Indication: ANGINA PECTORIS
     Dosage: 500 MG, BID, ORAL
     Route: 048
     Dates: start: 20080101
  2. TERAZOSIN HYDROCHLORIDE [Concomitant]
  3. COREG [Concomitant]
  4. FLUVOXAMINE MALEATE [Concomitant]
  5. ISOSORBIDE MONONITRATE [Concomitant]
  6. LIPITOR [Concomitant]
  7. NITROLINGUAL-PUMPSPRAY (GLYCERYL TRINITRATE) [Concomitant]
  8. PRILOSEC [Concomitant]
  9. PLAVIX [Concomitant]
  10. SPIRONOLACTONE [Concomitant]
  11. ZESTRIL [Concomitant]
  12. AMBIEN [Concomitant]
  13. VALIUM /00017001/ (DIAZEPAM) [Concomitant]
  14. NORVASC /00972041/ (AMLODIPINE) [Concomitant]

REACTIONS (1)
  - THERAPEUTIC RESPONSE UNEXPECTED [None]
